FAERS Safety Report 6018572-2 (Version None)
Quarter: 2008Q4

REPORT INFORMATION
  Report Type: 
  Country: None (occurrence: None)
  Receive Date: 20081223
  Receipt Date: 20081219
  Transmission Date: 20090506
  Serious: Yes (Other)
  Sender: FDA-Public Use
  Company Number: DE-B.I. PHARMACEUTICALS,INC./RIDGEFIELD-2008-DE-07536DE

PATIENT
  Sex: Female

DRUGS (9)
  1. SIFROL [Suspect]
     Indication: PARKINSON'S DISEASE
  2. DICLOFENAC SODIUM [Concomitant]
  3. MIRAPEX [Concomitant]
     Indication: PARKINSON'S DISEASE
     Dosage: 4.5MG
     Route: 048
     Dates: start: 20070813
  4. NAPROXEN [Concomitant]
     Indication: PAIN
     Dosage: 1000MG
     Route: 048
     Dates: start: 20080801
  5. TRAMADOL [Concomitant]
     Indication: PAIN
     Dosage: 400MG
     Route: 048
     Dates: start: 20080801
  6. AZILECT [Concomitant]
     Indication: PARKINSON'S DISEASE
     Dosage: 1MG
     Route: 048
     Dates: start: 20060406
  7. AMANTADINE HCL [Concomitant]
     Indication: PARKINSON'S DISEASE
     Dosage: 200MG
     Route: 048
     Dates: start: 20080605
  8. LEVOPAR [Concomitant]
     Indication: PARKINSON'S DISEASE
     Dosage: 62.5MG
     Route: 048
     Dates: start: 20081125
  9. KADADOLON [Concomitant]
     Indication: PAIN
     Route: 048

REACTIONS (2)
  - BREAST CANCER METASTATIC [None]
  - METASTASES TO SPINE [None]
